FAERS Safety Report 17604237 (Version 6)
Quarter: 2020Q2

REPORT INFORMATION
  Report Type: Report from Study
  Country: None (occurrence: ES)
  Receive Date: 20200331
  Receipt Date: 20200624
  Transmission Date: 20200713
  Serious: Yes (Hospitalization)
  Sender: FDA-Public Use
  Company Number: ES-ABBVIE-20K-144-3344362-00

PATIENT
  Age: 67 Year
  Sex: Male
  Weight: 72 kg

DRUGS (1)
  1. DUODOPA [Suspect]
     Active Substance: CARBIDOPA\LEVODOPA
     Indication: PRODUCT USED FOR UNKNOWN INDICATION
     Route: 050
     Dates: start: 20190606

REACTIONS (7)
  - Freezing phenomenon [Unknown]
  - Psychiatric symptom [Recovered/Resolved]
  - Mobility decreased [Not Recovered/Not Resolved]
  - Weight decreased [Recovering/Resolving]
  - Coronavirus test positive [Recovered/Resolved]
  - Pneumonia [Recovered/Resolved]
  - On and off phenomenon [Unknown]

NARRATIVE: CASE EVENT DATE: 2020
